FAERS Safety Report 24828968 (Version 1)
Quarter: 2025Q1

REPORT INFORMATION
  Report Type: Spontaneous
  Country: US (occurrence: US)
  Receive Date: 20250110
  Receipt Date: 20250110
  Transmission Date: 20250408
  Serious: Yes (Death)
  Sender: GRIFOLS
  Company Number: US-IGSA-BIG0032238

PATIENT
  Age: 87 Year
  Sex: Female

DRUGS (2)
  1. GAMUNEX-C [Suspect]
     Active Substance: HUMAN IMMUNOGLOBULIN G
     Indication: Non-Hodgkin^s lymphoma
     Dosage: 32 GRAM, Q.M.T.
     Route: 042
     Dates: start: 20171122, end: 20241226
  2. GAMUNEX-C [Suspect]
     Active Substance: HUMAN IMMUNOGLOBULIN G
     Indication: Off label use

REACTIONS (1)
  - Death [Fatal]
